FAERS Safety Report 7501335-6 (Version None)
Quarter: 2011Q2

REPORT INFORMATION
  Report Type: 
  Country: None (occurrence: None)
  Receive Date: 20110524
  Receipt Date: 20110517
  Transmission Date: 20111010
  Serious: Yes (Life-Threatening, Hospitalization, Other)
  Sender: FDA-Public Use
  Company Number: JP-PFIZER INC-2011082669

PATIENT
  Age: 85 Year
  Sex: Female

DRUGS (4)
  1. LYRICA [Suspect]
     Indication: BACK PAIN
     Dosage: 75 MG, 2X/DAY
     Route: 048
     Dates: start: 20110330, end: 20110404
  2. LYRICA [Suspect]
     Indication: HYPOAESTHESIA
  3. VIVIANT [Concomitant]
     Indication: OSTEOPOROSIS
     Dosage: 20 MG, DAILY
     Route: 048
     Dates: start: 20110101
  4. MENATETRENONE [Concomitant]
     Indication: OSTEOPOROSIS
     Dosage: 45 MG, DAILY
     Route: 048
     Dates: start: 20110329

REACTIONS (3)
  - SOMNOLENCE [None]
  - PNEUMONIA ASPIRATION [None]
  - NEAR DROWNING [None]
